FAERS Safety Report 6202548-6 (Version None)
Quarter: 2009Q2

REPORT INFORMATION
  Report Type: 
  Country: None (occurrence: None)
  Receive Date: 20090521
  Receipt Date: 20090521
  Transmission Date: 20091009
  Serious: Yes (Hospitalization)
  Sender: FDA-Public Use
  Company Number: None

PATIENT
  Age: 49 Year
  Sex: Female
  Weight: 68.9 kg

DRUGS (2)
  1. LAPATINIB 250 MG (GLAXOSMITHKLINE) [Suspect]
     Indication: BREAST CANCER
     Dosage: 1000 MG PO QD
     Route: 048
     Dates: start: 20090101, end: 20090428
  2. HERCEPTIN [Suspect]
     Indication: BREAST CANCER
     Dosage: 2 MG/KG IV Q WEEKLY
     Route: 042
     Dates: start: 20090101, end: 20090428

REACTIONS (3)
  - FALL [None]
  - LACERATION [None]
  - PAIN [None]
